FAERS Safety Report 25457336 (Version 1)
Quarter: 2025Q2

REPORT INFORMATION
  Report Type: Spontaneous
  Country: HR (occurrence: HR)
  Receive Date: 20250619
  Receipt Date: 20250619
  Transmission Date: 20250717
  Serious: Yes (Hospitalization)
  Sender: ELI LILLY AND COMPANY
  Company Number: HR-ELI_LILLY_AND_COMPANY-HR202506013370

PATIENT
  Age: 27 Year

DRUGS (1)
  1. OLUMIANT [Suspect]
     Active Substance: BARICITINIB
     Indication: Product used for unknown indication
     Route: 065
     Dates: start: 20240425

REACTIONS (4)
  - Nephrolithiasis [Recovered/Resolved]
  - C-reactive protein increased [Recovered/Resolved]
  - Body temperature increased [Recovered/Resolved]
  - Infection [Recovered/Resolved]

NARRATIVE: CASE EVENT DATE: 20250501
